FAERS Safety Report 9811910 (Version 2)
Quarter: 2015Q4

REPORT INFORMATION
  Report Type: Spontaneous
  Country: US (occurrence: US)
  Receive Date: 20140110
  Receipt Date: 20151228
  Transmission Date: 20160305
  Serious: Yes (Hospitalization, Other)
  Sender: FDA-Public Use
  Company Number: US-SANOFI-AVENTIS-2013SA068551

PATIENT
  Age: 69 Year
  Sex: Male
  Weight: 99.7 kg

DRUGS (56)
  1. COUMADIN [Concomitant]
     Active Substance: WARFARIN SODIUM
     Indication: DEEP VEIN THROMBOSIS
     Dosage: DOSE: 4 TABS FOR 2 DAYS, 6 TABS FOR 1 DAY, REPEAT ONCE A DAY
  2. FISH OIL [Concomitant]
     Active Substance: FISH OIL
  3. FENOFIBRATE. [Concomitant]
     Active Substance: FENOFIBRATE
     Indication: BLOOD TRIGLYCERIDES
     Dosage: WITH MEAL
     Route: 048
  4. VITAMIN B12 [Concomitant]
     Active Substance: CYANOCOBALAMIN
     Dosage: STRENGTH: 1000 MCG
     Route: 048
  5. AMBIEN [Concomitant]
     Active Substance: ZOLPIDEM TARTRATE
  6. NEURONTIN [Concomitant]
     Active Substance: GABAPENTIN
     Indication: NEUROPATHY PERIPHERAL
  7. LIBRIUM [Concomitant]
     Active Substance: CHLORDIAZEPOXIDE HYDROCHLORIDE
  8. FIORICET [Concomitant]
     Active Substance: ACETAMINOPHEN\BUTALBITAL\CAFFEINE
     Route: 048
  9. HYDROCODONE [Concomitant]
     Active Substance: HYDROCODONE
     Dosage: DOSE: 7.5/500 MG
  10. ALIGN [Concomitant]
     Active Substance: BIFIDOBACTERIUM LONGUM SUBSP. INFANTIS
     Indication: SUPPLEMENTATION THERAPY
  11. PERCOCET [Concomitant]
     Active Substance: ACETAMINOPHEN\OXYCODONE HYDROCHLORIDE
     Indication: BACK PAIN
     Dosage: DOSE:7-5-325 MG
  12. NEXIUM [Concomitant]
     Active Substance: ESOMEPRAZOLE MAGNESIUM
     Indication: GASTROOESOPHAGEAL REFLUX DISEASE
  13. ATORVASTATIN CALCIUM. [Concomitant]
     Active Substance: ATORVASTATIN CALCIUM
  14. VITAMIN D3 [Concomitant]
     Active Substance: CHOLECALCIFEROL
     Route: 048
  15. NEUTRA-PHOS [Concomitant]
     Active Substance: POTASSIUM PHOSPHATE, DIBASIC\POTASSIUM PHOSPHATE, MONOBASIC\SODIUM PHOSPHATE, DIBASIC\SODIUM PHOSPHATE, MONOBASIC
  16. INSULIN, REGULAR [Concomitant]
     Active Substance: INSULIN NOS
  17. PRILOSEC [Concomitant]
     Active Substance: OMEPRAZOLE MAGNESIUM
     Route: 048
  18. ATENOLOL. [Concomitant]
     Active Substance: ATENOLOL
     Indication: HYPERTENSION
  19. LISINOPRIL. [Concomitant]
     Active Substance: LISINOPRIL
     Indication: HYPERTENSION
  20. CRESTOR [Concomitant]
     Active Substance: ROSUVASTATIN CALCIUM
     Route: 048
  21. NIACIN. [Concomitant]
     Active Substance: NIACIN
     Dosage: DOSE:  ONE DAILY - ACTUALLY IN 2 TABS BID
     Route: 048
  22. GLUCOPHAGE [Concomitant]
     Active Substance: METFORMIN HYDROCHLORIDE
  23. INSULIN LISPRO [Concomitant]
     Active Substance: INSULIN LISPRO
     Dosage: BEFORE MEALS AND AFTER BEDTIME DOSE:7 UNIT(S)
  24. ASPIRIN. [Concomitant]
     Active Substance: ASPIRIN
     Indication: CARDIAC DISORDER
     Route: 065
  25. LASIX [Concomitant]
     Active Substance: FUROSEMIDE
     Indication: SWELLING
  26. NOVOLIN [Concomitant]
     Active Substance: INSULIN HUMAN
     Route: 058
  27. VITAMIN C [Concomitant]
     Active Substance: ASCORBIC ACID
     Dosage: STRENGTH:500 MG
     Route: 048
  28. HUMULIN N [Concomitant]
     Active Substance: INSULIN HUMAN
     Dosage: IN THE MORNING (AM) DOSE:35 UNIT(S)
  29. VIAGRA [Concomitant]
     Active Substance: SILDENAFIL CITRATE
     Indication: ERECTILE DYSFUNCTION
  30. VIAGRA [Concomitant]
     Active Substance: SILDENAFIL CITRATE
  31. LASIX [Concomitant]
     Active Substance: FUROSEMIDE
     Indication: FLUID RETENTION
  32. NIASPAN [Concomitant]
     Active Substance: NIACIN
     Dosage: FORM: TABLET CONTROLLED RELEASE?DOSE: ONE AT BEDTIME FOR 2 WEEKS THEN 2 AT BEDTIME.
     Route: 048
  33. XANAX [Concomitant]
     Active Substance: ALPRAZOLAM
  34. ZOCOR [Concomitant]
     Active Substance: SIMVASTATIN
  35. VASOPRESSIN INJECTION [Concomitant]
     Active Substance: VASOPRESSIN
     Dosage: DOSE:40 UNIT(S)
  36. AMIODARONE [Concomitant]
     Active Substance: AMIODARONE
     Dosage: SOLUTION
     Route: 042
  37. OXYCOD [Concomitant]
     Indication: PAIN
  38. NOVOLOG [Concomitant]
     Active Substance: INSULIN ASPART
     Indication: DIABETES MELLITUS
     Dosage: DOSE + FREQUENCY:160-165 UNITS DAILY AS NEEDED PER PUMP
  39. ALLOPURINOL. [Concomitant]
     Active Substance: ALLOPURINOL
     Indication: GOUT
     Dosage: STRENGTH: 300 MG
  40. VYTORIN [Concomitant]
     Active Substance: EZETIMIBE\SIMVASTATIN
     Indication: HYPERLIPIDAEMIA
  41. MEXILETINE HYDROCHLORIDE. [Concomitant]
     Active Substance: MEXILETINE HYDROCHLORIDE
     Route: 048
  42. ERGOCALCIFEROL. [Concomitant]
     Active Substance: ERGOCALCIFEROL
     Dosage: STRENGTH: 50,000 UNIT
     Route: 048
  43. PRINIVIL [Concomitant]
     Active Substance: LISINOPRIL
  44. PROTONIX [Concomitant]
     Active Substance: PANTOPRAZOLE SODIUM
     Route: 048
  45. PLAVIX [Suspect]
     Active Substance: CLOPIDOGREL BISULFATE
     Indication: PERIPHERAL ARTERIAL OCCLUSIVE DISEASE
     Route: 048
     Dates: start: 19990101, end: 20121201
  46. WARFARIN [Concomitant]
     Active Substance: WARFARIN
     Indication: ANTICOAGULANT THERAPY
     Dosage: 5 TIMES A DAY
  47. XARELTO [Concomitant]
     Active Substance: RIVAROXABAN
  48. EPINEPHRINE. [Concomitant]
     Active Substance: EPINEPHRINE
     Dosage: SOLUTION
     Route: 042
  49. SENNA [Concomitant]
     Active Substance: SENNA LEAF\SENNOSIDES\SENNOSIDES A AND B
  50. INSULIN [Concomitant]
     Active Substance: INSULIN NOS
     Indication: DIABETES MELLITUS
  51. ATENOLOL. [Concomitant]
     Active Substance: ATENOLOL
     Indication: HYPERTENSION
  52. ALPRAZOLAM. [Concomitant]
     Active Substance: ALPRAZOLAM
     Indication: ANXIETY
     Dosage: 3 TIMES A DAY
  53. HUMULIN N [Concomitant]
     Active Substance: INSULIN HUMAN
     Dosage: 45 UNITS IN MORNING (AM) AND 50 UNITS IN NIGHT (PM)
  54. ATROPINE. [Concomitant]
     Active Substance: ATROPINE
     Dosage: FORM: SOLUTION
     Route: 042
  55. FEXOFENADINE [Concomitant]
     Active Substance: FEXOFENADINE\FEXOFENADINE HYDROCHLORIDE
     Route: 048
  56. CENTRUM SILVER [Concomitant]
     Active Substance: MINERALS\VITAMINS
     Indication: SUPPLEMENTATION THERAPY

REACTIONS (5)
  - Gastrointestinal haemorrhage [Unknown]
  - Sleep apnoea syndrome [Unknown]
  - Subdural haematoma [Unknown]
  - Memory impairment [Unknown]
  - Oedema [Unknown]

NARRATIVE: CASE EVENT DATE: 201109
